FAERS Safety Report 8768071 (Version 1)
Quarter: 2012Q4

REPORT INFORMATION
  Report Type: 
  Country: JP (occurrence: JP)
  Receive Date: 20120905
  Receipt Date: 20120905
  Transmission Date: 20130627
  Serious: Yes (Hospitalization)
  Sender: FDA-Public Use
  Company Number: JP-ROCHE-1114331

PATIENT
  Sex: Male

DRUGS (3)
  1. XELODA [Suspect]
     Indication: RECTAL CANCER METASTATIC
     Dosage: 2 weeks administration followed by 1 week rest
     Route: 048
  2. AVASTIN [Suspect]
     Indication: RECTAL CANCER METASTATIC
     Route: 041
  3. ELPLAT [Suspect]
     Indication: RECTAL CANCER METASTATIC
     Route: 041

REACTIONS (1)
  - Intestinal obstruction [Recovered/Resolved]
